FAERS Safety Report 22073974 (Version 1)
Quarter: 2023Q1

REPORT INFORMATION
  Report Type: Spontaneous
  Country: US (occurrence: US)
  Receive Date: 20230308
  Receipt Date: 20230308
  Transmission Date: 20230417
  Serious: No
  Sender: FDA-Public Use
  Company Number: US-002147023-NVSC2023US050125

PATIENT

DRUGS (1)
  1. XIIDRA [Suspect]
     Active Substance: LIFITEGRAST
     Indication: Dry eye
     Dosage: 1 DRP, BID (GTT) (1 DROP IN EACH EYE)
     Route: 047
     Dates: start: 20221222, end: 20230228

REACTIONS (2)
  - Abdominal discomfort [Unknown]
  - Dysgeusia [Unknown]

NARRATIVE: CASE EVENT DATE: 20221222
